FAERS Safety Report 4364463-2 (Version None)
Quarter: 2004Q2

REPORT INFORMATION
  Report Type: 
  Country: None (occurrence: None)
  Receive Date: 20040519
  Receipt Date: 20040507
  Transmission Date: 20050107
  Serious: Yes (Hospitalization)
  Sender: FDA-Public Use
  Company Number: 04P-163-0260278-00

PATIENT
  Age: 28 Year
  Sex: Male

DRUGS (5)
  1. KALETRA [Suspect]
     Indication: HIV INFECTION
     Dosage: PER ORAL
     Route: 048
     Dates: end: 20040425
  2. LAMOTRIGINE [Concomitant]
  3. VALPROATE SODIUM [Concomitant]
  4. STAVUDINE [Concomitant]
  5. EMTRICITABINE [Concomitant]

REACTIONS (2)
  - DRUG TOXICITY [None]
  - RHABDOMYOLYSIS [None]
